FAERS Safety Report 24019457 (Version 2)
Quarter: 2024Q3

REPORT INFORMATION
  Report Type: Spontaneous
  Country: EC (occurrence: EC)
  Receive Date: 20240627
  Receipt Date: 20240821
  Transmission Date: 20241016
  Serious: Yes (Other)
  Sender: ROCHE
  Company Number: EC-ROCHE-10000004806

PATIENT
  Age: 57 Year
  Sex: Male

DRUGS (2)
  1. AVASTIN [Suspect]
     Active Substance: BEVACIZUMAB
     Indication: Diabetic retinal oedema
     Dosage: FREQUENCY IS VARIABLE, THE PATIENT RECEIVES AVASTIN DEPENDING ON THE EVOLUTION OF HIS CONDITION
     Route: 050
     Dates: start: 202207
  2. AVASTIN [Suspect]
     Active Substance: BEVACIZUMAB
     Route: 050

REACTIONS (4)
  - Bacterial endophthalmitis [Recovered/Resolved]
  - Off label use [Unknown]
  - Product counterfeit [Unknown]
  - Off label use [Unknown]

NARRATIVE: CASE EVENT DATE: 20240611
